FAERS Safety Report 8179898-X (Version None)
Quarter: 2012Q1

REPORT INFORMATION
  Report Type: 
  Country: None (occurrence: None)
  Receive Date: 20120302
  Receipt Date: 20120227
  Transmission Date: 20120608
  Serious: Yes (Death, Hospitalization)
  Sender: FDA-Public Use
  Company Number: NL-GENZYME-CLOF-1001730

PATIENT
  Sex: Female
  Weight: 55 kg

DRUGS (12)
  1. PREDNISOLONE [Suspect]
     Dosage: TAPERING
     Route: 048
     Dates: start: 20110803, end: 20110808
  2. PERSANTIN [Concomitant]
     Indication: TRANSIENT ISCHAEMIC ATTACK
     Dosage: 200 MG, TID
     Route: 048
     Dates: start: 20110301, end: 20110814
  3. EVOLTRA [Suspect]
     Dosage: 52 MG, QDX5 (2 CYCLES TOTAL)
     Route: 042
     Dates: start: 20110607, end: 20110611
  4. ADRIAMYCIN PFS [Suspect]
     Indication: ACUTE LYMPHOCYTIC LEUKAEMIA
     Dosage: 64 MG ONCE
     Route: 042
     Dates: start: 20110216, end: 20110216
  5. ADRIAMYCIN PFS [Suspect]
     Dosage: 64 MG ONCE
     Route: 042
     Dates: start: 20110713, end: 20110713
  6. PREDNISOLONE [Suspect]
     Indication: ACUTE LYMPHOCYTIC LEUKAEMIA
     Dosage: 70 MG, UNK
     Route: 048
     Dates: start: 20110713, end: 20110803
  7. COTRIM [Concomitant]
     Indication: PROPHYLAXIS
     Dosage: 480 MG, UNK
     Route: 048
     Dates: end: 20110725
  8. ADRIAMYCIN PFS [Suspect]
     Dosage: 64 MG ONCE
     Route: 042
     Dates: start: 20110223, end: 20110223
  9. ADRIAMYCIN PFS [Suspect]
     Dosage: 64 MG ONCE
     Route: 042
     Dates: start: 20110720, end: 20110720
  10. CARBASALATE CALCIUM [Concomitant]
     Indication: TRANSIENT ISCHAEMIC ATTACK
     Dosage: 100 MG, QD
     Route: 048
     Dates: start: 20110301, end: 20110814
  11. EVOLTRA [Suspect]
     Indication: ACUTE LYMPHOCYTIC LEUKAEMIA
     Dosage: 52 MG, QDX5 (2 CYCLES TOTAL)
     Route: 042
     Dates: start: 20110202, end: 20110206
  12. ITRACONAZOLE [Concomitant]
     Indication: PROPHYLAXIS
     Dosage: 200 MG, BID
     Route: 048
     Dates: start: 20110201, end: 20110301

REACTIONS (4)
  - CLOSTRIDIUM DIFFICILE COLITIS [None]
  - BRONCHOPULMONARY ASPERGILLOSIS [None]
  - GASTROINTESTINAL HAEMORRHAGE [None]
  - HERPES SIMPLEX [None]
